FAERS Safety Report 4977771-9 (Version None)
Quarter: 2006Q1

REPORT INFORMATION
  Report Type: 
  Country: None (occurrence: None)
  Receive Date: 20060215
  Receipt Date: 20050708
  Transmission Date: 20060701
  Serious: Yes (Other)
  Sender: FDA-Public Use
  Company Number: MC200500602

PATIENT
  Age: 44 Year
  Sex: Male
  Weight: 76 kg

DRUGS (6)
  1. ANGIOMAX [Suspect]
     Dosage: 75 MG/KG, BOLUS, IV BOLUS
     Route: 040
     Dates: start: 20050705
  2. ANGIOMAX [Suspect]
     Dosage: 1.75 MG/KG, HR, INTRAVENOUS
     Route: 042
     Dates: start: 20050705, end: 20050705
  3. ANGIOMAX [Suspect]
     Dosage: 0.75 MG/KG, BOLUS, 30MINBEFORE PCI, IV BOLUS
     Route: 040
     Dates: start: 20050707
  4. ANGIOMAX [Suspect]
     Dosage: 1.75 MG/KG, HRDRIPFOR10HRPOSTPCI, INTRAVENOUS
     Route: 042
     Dates: start: 20050707, end: 20050708
  5. ASPIRIN [Concomitant]
  6. PLAVIX [Concomitant]

REACTIONS (2)
  - CHEST PAIN [None]
  - STENT OCCLUSION [None]
